FAERS Safety Report 18211553 (Version 1)
Quarter: 2020Q3

REPORT INFORMATION
  Report Type: Spontaneous
  Country: US (occurrence: US)
  Receive Date: 20200831
  Receipt Date: 20200831
  Transmission Date: 20201103
  Serious: Yes (Hospitalization, Other)
  Sender: FDA-Public Use
  Company Number: US-GILEAD-2020-0456516

PATIENT
  Age: 36 Year
  Sex: Male

DRUGS (14)
  1. NORVIR [Concomitant]
     Active Substance: RITONAVIR
  2. COLACE [Concomitant]
     Active Substance: DOCUSATE SODIUM
  3. LOVENOX HP [Concomitant]
     Active Substance: ENOXAPARIN SODIUM
  4. MAALOX ADVANCED [ALUMINIUM HYDROXIDE;MAGNESIUM HYDROXIDE;SIMETICONE] [Concomitant]
  5. ATRIPLA [Suspect]
     Active Substance: EFAVIRENZ\EMTRICITABINE\TENOFOVIR DISOPROXIL FUMARATE
     Indication: HIV INFECTION
     Dosage: UNK
     Route: 048
     Dates: start: 2009, end: 201603
  6. PREZCOBIX [Concomitant]
     Active Substance: COBICISTAT\DARUNAVIR ETHANOLATE
  7. AMOXICILLIN. [Concomitant]
     Active Substance: AMOXICILLIN
  8. PREZISTA [Concomitant]
     Active Substance: DARUNAVIR ETHANOLATE
  9. PREDNISONE. [Concomitant]
     Active Substance: PREDNISONE
  10. SENOKOT [Concomitant]
     Active Substance: SENNOSIDES
  11. TYLENOL 8HR [Concomitant]
     Active Substance: ACETAMINOPHEN
  12. HYDROCHLOROTHIAZIDE. [Concomitant]
     Active Substance: HYDROCHLOROTHIAZIDE
  13. LORTAB [LORATADINE] [Concomitant]
     Active Substance: LORATADINE
  14. TIVICAY [Concomitant]
     Active Substance: DOLUTEGRAVIR SODIUM

REACTIONS (5)
  - Foot fracture [Recovered/Resolved]
  - Foot fracture [Unknown]
  - Acute kidney injury [Unknown]
  - Fanconi syndrome acquired [Not Recovered/Not Resolved]
  - Renal failure [Not Recovered/Not Resolved]

NARRATIVE: CASE EVENT DATE: 20160308
